FAERS Safety Report 22916026 (Version 2)
Quarter: 2023Q4

REPORT INFORMATION
  Report Type: Spontaneous
  Country: US (occurrence: US)
  Receive Date: 20230907
  Receipt Date: 20231001
  Transmission Date: 20240109
  Serious: No
  Sender: FDA-Public Use
  Company Number: US-SA-SAC20230904001318

PATIENT
  Age: 40 Year
  Sex: Male

DRUGS (4)
  1. ELOCTATE [Suspect]
     Active Substance: EFMOROCTOCOG ALFA
     Indication: Factor VIII deficiency
     Dosage: 4000 (3600-4400)  IU, Q4D
     Route: 041
  2. ELOCTATE [Suspect]
     Active Substance: EFMOROCTOCOG ALFA
     Indication: Factor VIII deficiency
     Dosage: 4000 (3600-4400)  IU, Q4D
     Route: 041
  3. ELOCTATE [Suspect]
     Active Substance: EFMOROCTOCOG ALFA
     Dosage: 2500 (2250-2750)  IU, PRN (12 TO 24 HOURS AS NEEDED)
     Route: 041
  4. ELOCTATE [Suspect]
     Active Substance: EFMOROCTOCOG ALFA
     Dosage: 2500 (2250-2750)  IU, PRN (12 TO 24 HOURS AS NEEDED)
     Route: 041

REACTIONS (4)
  - Traumatic haemorrhage [Recovered/Resolved]
  - Limb injury [Recovered/Resolved]
  - Traumatic haemorrhage [Recovered/Resolved]
  - Joint injury [Unknown]

NARRATIVE: CASE EVENT DATE: 20230829
